FAERS Safety Report 7602347-4 (Version None)
Quarter: 2011Q3

REPORT INFORMATION
  Report Type: 
  Country: None (occurrence: None)
  Receive Date: 20110712
  Receipt Date: 20110704
  Transmission Date: 20111222
  Serious: Yes (Death, Hospitalization)
  Sender: FDA-Public Use
  Company Number: BR-BIOGENIDEC-2011BI024375

PATIENT
  Age: 29 Year
  Sex: Female

DRUGS (2)
  1. UNSPECIFIED MEDICINE [Concomitant]
     Indication: DEPRESSION
     Dates: end: 20110704
  2. TYSABRI [Suspect]
     Indication: MULTIPLE SCLEROSIS
     Route: 042
     Dates: start: 20080101, end: 20110622

REACTIONS (4)
  - DECREASED APPETITE [None]
  - OVERDOSE [None]
  - DEPRESSION [None]
  - COMPLETED SUICIDE [None]
